FAERS Safety Report 8523438 (Version 4)
Quarter: 2012Q4

REPORT INFORMATION
  Report Type: Report from Study
  Country: GB (occurrence: GB)
  Receive Date: 20120420
  Receipt Date: 20121108
  Transmission Date: 20130627
  Serious: Yes (Other)
  Sender: FDA-Public Use
  Company Number: GB-ASTRAZENECA-2012SE24267

PATIENT
  Age: 72 Year
  Sex: Female

DRUGS (10)
  1. VANDETANIB [Suspect]
     Indication: THYROID CANCER
     Route: 048
     Dates: start: 20110906, end: 20110919
  2. VANDETANIB [Suspect]
     Indication: THYROID CANCER
     Route: 048
     Dates: start: 20111004, end: 20120412
  3. LEVOTHYROXINE [Concomitant]
     Indication: THYROIDECTOMY
     Route: 048
  4. ALDONIC ACID [Concomitant]
     Indication: BONE DISORDER
     Route: 048
  5. CALCICHEW D3 [Concomitant]
     Indication: HORMONE REPLACEMENT THERAPY
     Route: 048
  6. VITAMIN B COMPLEX [Concomitant]
     Indication: VITAMIN SUPPLEMENTATION
     Route: 048
  7. LOPERAMIDE [Concomitant]
     Indication: DIARRHOEA
     Route: 048
  8. PARACETAMOL [Concomitant]
     Indication: DISCOMFORT
     Route: 048
  9. AMLODIPINE [Concomitant]
     Indication: HYPERTENSION
     Route: 048
     Dates: start: 20110919, end: 20110925
  10. AMLODIPINE [Concomitant]
     Indication: HYPERTENSION
     Route: 048
     Dates: start: 20110926

REACTIONS (1)
  - Haematocrit increased [Not Recovered/Not Resolved]
